FAERS Safety Report 25177930 (Version 1)
Quarter: 2025Q2

REPORT INFORMATION
  Report Type: Spontaneous
  Country: US (occurrence: None)
  Receive Date: 20250408
  Receipt Date: 20250408
  Transmission Date: 20250716
  Serious: No
  Sender: FDA-CTU
  Company Number: None

PATIENT
  Age: 62 Year
  Sex: Female
  Weight: 49.3 kg

DRUGS (2)
  1. CAPECITABINE [Suspect]
     Active Substance: CAPECITABINE
     Indication: Breast cancer
     Dosage: 1000 MG BID BUCCAL ?
     Route: 002
     Dates: start: 20241206, end: 20250331
  2. CAPECITABINE [Suspect]
     Active Substance: CAPECITABINE
     Indication: Breast cancer
     Dosage: 150 MG BID BUCCAL ?
     Route: 002
     Dates: start: 20241206, end: 20250331

REACTIONS (3)
  - Limb discomfort [None]
  - Blister [None]
  - Onychomadesis [None]

NARRATIVE: CASE EVENT DATE: 20250331
